FAERS Safety Report 5861733-3 (Version None)
Quarter: 2008Q3

REPORT INFORMATION
  Report Type: 
  Country: None (occurrence: None)
  Receive Date: 20080826
  Receipt Date: 20080813
  Transmission Date: 20090109
  Serious: Yes (Other)
  Sender: FDA-Public Use
  Company Number: 1000000611

PATIENT
  Age: 56 Year
  Sex: Male

DRUGS (3)
  1. ESCITALOPRAM (ESCITALOPRAM OXALATE) (20 MILLIGRAM, TABLETS) [Suspect]
     Indication: DEPRESSION
     Dosage: 20 MG (20 MG, 1 IN 1 D), ORAL
     Route: 048
     Dates: start: 20080623, end: 20080717
  2. ABILIFY [Suspect]
     Dosage: 10 MG (10 MG, 1 IN 1 D)
     Dates: start: 20080702, end: 20080717
  3. INSULIN [Concomitant]

REACTIONS (2)
  - BENIGN PROSTATIC HYPERPLASIA [None]
  - URINARY RETENTION [None]
